FAERS Safety Report 7592149-X (Version None)
Quarter: 2011Q3

REPORT INFORMATION
  Report Type: 
  Country: None (occurrence: None)
  Receive Date: 20110705
  Receipt Date: 20110705
  Transmission Date: 20111222
  Serious: Yes (Disabling)
  Sender: FDA-Public Use
  Company Number: None

PATIENT
  Sex: Male
  Weight: 74.8435 kg

DRUGS (1)
  1. APLRAZOLAM 1MG MYLAN [Suspect]
     Indication: ANXIETY DISORDER
     Dosage: 1 3 X PO
     Route: 048
     Dates: start: 20110402, end: 20110625

REACTIONS (6)
  - LOSS OF CONSCIOUSNESS [None]
  - IRRITABILITY [None]
  - AGGRESSION [None]
  - MEMORY IMPAIRMENT [None]
  - AMNESIA [None]
  - IMPRISONMENT [None]
